FAERS Safety Report 8543912 (Version 2)
Quarter: 2012Q4

REPORT INFORMATION
  Report Type: Report from Study
  Country: GB (occurrence: GB)
  Receive Date: 20120503
  Receipt Date: 20120917
  Transmission Date: 20130627
  Serious: Yes (Life-Threatening, Hospitalization)
  Sender: FDA-Public Use
  Company Number: GB-JNJFOC-20120413903

PATIENT
  Age: 62 Year
  Sex: Male
  Weight: 90.7 kg

DRUGS (13)
  1. USTEKINUMAB [Suspect]
     Indication: PSORIASIS
     Route: 058
     Dates: end: 20120605
  2. USTEKINUMAB [Suspect]
     Indication: PSORIASIS
     Route: 058
     Dates: start: 20110802
  3. SIMVASTATIN [Concomitant]
     Route: 065
     Dates: start: 20000516
  4. EZETIMIBE [Concomitant]
     Dates: start: 20020516
  5. DIPROBASE CREAM [Concomitant]
     Route: 061
  6. DOVOBET [Concomitant]
  7. RAMIPRIL [Concomitant]
     Dates: start: 20020516
  8. ATENOLOL [Concomitant]
     Dates: start: 20020516
  9. CITALOPRAM [Concomitant]
     Dates: start: 20111124
  10. SALBUTAMOL [Concomitant]
     Route: 065
     Dates: start: 20120217
  11. TIOTROPIUM [Concomitant]
     Route: 065
     Dates: start: 20120217
  12. SERETIDE [Concomitant]
     Route: 065
     Dates: start: 20120217
  13. PREDNISOLONE [Concomitant]
     Route: 065
     Dates: start: 20120217

REACTIONS (3)
  - Respiratory failure [Recovered/Resolved]
  - Respiratory arrest [Recovered/Resolved]
  - Chronic obstructive pulmonary disease [Not Recovered/Not Resolved]
